FAERS Safety Report 4523265-4 (Version None)
Quarter: 2004Q4

REPORT INFORMATION
  Report Type: 
  Country: None (occurrence: None)
  Receive Date: 20041203
  Receipt Date: 20041117
  Transmission Date: 20050328
  Serious: Yes (Other)
  Sender: FDA-Public Use
  Company Number: 601547

PATIENT
  Age: 10 Year
  Sex: Male
  Weight: 42.8 kg

DRUGS (2)
  1. RECOMBINATE [Suspect]
     Indication: FACTOR VIII DEFICIENCY
     Dosage: INTRAVENOUS
     Route: 042
     Dates: start: 19920101
  2. BLOOD AND RELATED PRODUCTS [Concomitant]

REACTIONS (1)
  - HEPATITIS C POSITIVE [None]
